FAERS Safety Report 13242858 (Version 2)
Quarter: 2017Q2

REPORT INFORMATION
  Report Type: Spontaneous
  Country: US (occurrence: US)
  Receive Date: 20170216
  Receipt Date: 20170605
  Transmission Date: 20170830
  Serious: Yes (Hospitalization)
  Sender: FDA-Public Use
  Company Number: US-VIFOR (INTERNATIONAL) INC.-VIT-2017-01524

PATIENT
  Age: 67 Year
  Sex: Male
  Weight: 99.88 kg

DRUGS (12)
  1. VELTASSA [Suspect]
     Active Substance: PATIROMER
     Indication: HYPERKALAEMIA
     Route: 048
     Dates: start: 20160817
  2. FUROSEMIDE. [Concomitant]
     Active Substance: FUROSEMIDE
  3. DULOXETINE HYDROCHLORIDE. [Concomitant]
     Active Substance: DULOXETINE HYDROCHLORIDE
  4. ALLOPURINOL. [Concomitant]
     Active Substance: ALLOPURINOL
  5. PANTOPRAZOLE SODIUM SESQUIHYDRATE [Concomitant]
     Active Substance: PANTOPRAZOLE SODIUM
  6. SPIRONOLACTONE. [Concomitant]
     Active Substance: SPIRONOLACTONE
  7. XIFAXAN [Concomitant]
     Active Substance: RIFAXIMIN
  8. COLCHICINE. [Concomitant]
     Active Substance: COLCHICINE
  9. IRON [Concomitant]
     Active Substance: IRON
  10. WARFARIN SODIUM. [Concomitant]
     Active Substance: WARFARIN SODIUM
  11. ABSORICA [Concomitant]
     Active Substance: ISOTRETINOIN
  12. NADOLOL. [Concomitant]
     Active Substance: NADOLOL

REACTIONS (2)
  - Urinary tract infection [Recovered/Resolved]
  - Dehydration [Recovered/Resolved]

NARRATIVE: CASE EVENT DATE: 201702
